FAERS Safety Report 5940140-9 (Version None)
Quarter: 2008Q4

REPORT INFORMATION
  Report Type: 
  Country: None (occurrence: None)
  Receive Date: 20081104
  Receipt Date: 20081031
  Transmission Date: 20090506
  Serious: Yes (Life-Threatening, Hospitalization)
  Sender: FDA-Public Use
  Company Number: PHBS2008FR05412

PATIENT
  Age: 79 Year
  Sex: Female

DRUGS (9)
  1. PANTOPRAZOLE SODIUM [Suspect]
     Dosage: 40 MG, QD
     Route: 048
     Dates: start: 20070511, end: 20070514
  2. PANTOPRAZOLE SODIUM [Suspect]
     Dosage: 40 MG, QD
     Route: 048
     Dates: start: 20070530
  3. OCTREOTIDE ACETATE [Interacting]
     Indication: GASTRIC HAEMORRHAGE
     Dosage: 300 UG/DAY
     Route: 042
     Dates: start: 20070430, end: 20070505
  4. OCTREOTIDE ACETATE [Interacting]
     Dosage: 600 MCG/DAY
     Route: 042
     Dates: start: 20070506, end: 20070514
  5. PANTOPRAZOLE SODIUM [Interacting]
     Indication: GASTRIC HAEMORRHAGE
     Dosage: 20 MG/DAY
     Route: 042
     Dates: start: 20070430, end: 20070505
  6. PANTOPRAZOLE SODIUM [Interacting]
     Dosage: 200 MG/ DAY (8 MG, 1 IN 1 HR)
     Route: 042
     Dates: start: 20070506, end: 20070510
  7. PANTOPRAZOLE SODIUM [Interacting]
     Dosage: 40 MG/DAY
     Route: 042
     Dates: start: 20070515, end: 20070529
  8. CHOLESTYRAMINE [Interacting]
     Indication: PRURITUS
     Route: 065
  9. LACTULOSE [Concomitant]
     Indication: CONSTIPATION

REACTIONS (12)
  - ABDOMINAL DISTENSION [None]
  - ASPIRATION [None]
  - BEZOAR [None]
  - COLOSTOMY [None]
  - CONSTIPATION [None]
  - DRUG INTERACTION [None]
  - ENDOTRACHEAL INTUBATION [None]
  - FLATULENCE [None]
  - OBSTRUCTION [None]
  - RESPIRATORY DISTRESS [None]
  - SURGERY [None]
  - THERAPEUTIC PROCEDURE [None]
